FAERS Safety Report 8172024-2 (Version None)
Quarter: 2012Q1

REPORT INFORMATION
  Report Type: 
  Country: None (occurrence: None)
  Receive Date: 20120228
  Receipt Date: 20120220
  Transmission Date: 20120608
  Serious: Yes (Hospitalization)
  Sender: FDA-Public Use
  Company Number: PHHY2012FR015590

PATIENT
  Age: 50 Year
  Sex: Male

DRUGS (1)
  1. AMOXICILLIN [Suspect]
     Indication: SINUSITIS
     Dosage: 1 G, UNK
     Route: 048
     Dates: start: 20120106, end: 20120106

REACTIONS (5)
  - VERTIGO [None]
  - FEELING HOT [None]
  - SENSE OF OPPRESSION [None]
  - LOSS OF CONSCIOUSNESS [None]
  - RASH [None]
